FAERS Safety Report 5255000-9 (Version None)
Quarter: 2007Q1

REPORT INFORMATION
  Report Type: 
  Country: None (occurrence: None)
  Receive Date: 20070305
  Receipt Date: 20070226
  Transmission Date: 20070707
  Serious: Yes (Other)
  Sender: FDA-Public Use
  Company Number: US-PURDUE-USA_2007_0026603

PATIENT
  Age: 61 Year
  Sex: Female
  Weight: 68 kg

DRUGS (4)
  1. OXYCONTIN [Suspect]
     Indication: PAIN
     Dosage: 30 MG, TID
     Route: 048
     Dates: start: 20061226
  2. TRAZODONE HCL [Concomitant]
     Indication: DRUG USE FOR UNKNOWN INDICATION
     Dosage: 150 MG, DAILY
     Dates: start: 20060201
  3. DIAZEPAM [Concomitant]
     Indication: DRUG USE FOR UNKNOWN INDICATION
     Dosage: 5 MG, TID
     Dates: start: 20060801
  4. MEPROBAMATE [Concomitant]
     Indication: PANIC ATTACK
     Dosage: 400 MG, BID
     Dates: start: 19870101

REACTIONS (4)
  - BLINDNESS TRANSIENT [None]
  - EYELID DISORDER [None]
  - HYPERSOMNIA [None]
  - VISUAL DISTURBANCE [None]
